FAERS Safety Report 4563536-9 (Version None)
Quarter: 2005Q1

REPORT INFORMATION
  Report Type: 
  Country: None (occurrence: None)
  Receive Date: 20050128
  Receipt Date: 20040831
  Transmission Date: 20050727
  Serious: No
  Sender: FDA-Public Use
  Company Number: US-GLAXOSMITHKLINE-A0524060A

PATIENT
  Age: 66 Year
  Sex: Female

DRUGS (4)
  1. WELLBUTRIN [Suspect]
     Indication: DEPRESSION
     Dosage: 450MG UNKNOWN
     Route: 048
     Dates: start: 20040101
  2. ATIVAN [Concomitant]
  3. POTASSIUM CHLORIDE [Concomitant]
  4. MULTIVITAMIN [Concomitant]

REACTIONS (2)
  - DIZZINESS [None]
  - HEAD DISCOMFORT [None]
